FAERS Safety Report 8150042-8 (Version None)
Quarter: 2012Q1

REPORT INFORMATION
  Report Type: 
  Country: None (occurrence: None)
  Receive Date: 20120219
  Receipt Date: 20120207
  Transmission Date: 20120608
  Serious: Yes (Hospitalization, Other)
  Sender: FDA-Public Use
  Company Number: US-MYLANLABS-2012S1003325

PATIENT
  Sex: Male
  Weight: 117.03 kg

DRUGS (14)
  1. LOVENOX [Concomitant]
  2. AMITRIPTYLINE HCL [Concomitant]
  3. ASPIRIN [Concomitant]
  4. PLAVIX [Concomitant]
  5. GLUCOTROL [Concomitant]
  6. LASIX [Concomitant]
  7. PLAVIX [Concomitant]
  8. PRINIVIL [Concomitant]
  9. DIGOXIN [Suspect]
     Route: 048
     Dates: start: 20040625, end: 20081206
  10. COREG [Concomitant]
  11. CRESTOR [Concomitant]
  12. POTASSIUM CHLORIDE [Concomitant]
  13. LISINOPRIL [Concomitant]
  14. METFORMIN HCL [Concomitant]

REACTIONS (31)
  - STENT PLACEMENT [None]
  - DILATATION VENTRICULAR [None]
  - MUSCULOSKELETAL PAIN [None]
  - CORONARY ARTERY DISEASE [None]
  - INTERVERTEBRAL DISC DEGENERATION [None]
  - PAIN IN EXTREMITY [None]
  - DYSPNOEA [None]
  - ELECTROCARDIOGRAM ST-T SEGMENT DEPRESSION [None]
  - ISCHAEMIC CARDIOMYOPATHY [None]
  - SINUS TACHYCARDIA [None]
  - VENTRICULAR HYPERTROPHY [None]
  - NECK PAIN [None]
  - TRANSIENT ISCHAEMIC ATTACK [None]
  - SPINAL COLUMN STENOSIS [None]
  - ARTERIAL STENOSIS [None]
  - ANGINA PECTORIS [None]
  - LEFT VENTRICULAR DYSFUNCTION [None]
  - CHEST PAIN [None]
  - PERCUTANEOUS CORONARY INTERVENTION [None]
  - DISEASE RECURRENCE [None]
  - HYPERTRIGLYCERIDAEMIA [None]
  - HYPERTENSION [None]
  - ELECTROCARDIOGRAM ABNORMAL [None]
  - ELECTROCARDIOGRAM ST-T SEGMENT ABNORMAL [None]
  - MYOCARDIAL INFARCTION [None]
  - TYPE 2 DIABETES MELLITUS [None]
  - MITRAL VALVE INCOMPETENCE [None]
  - MYOCARDIAL ISCHAEMIA [None]
  - HYPOKINESIA [None]
  - CHEST DISCOMFORT [None]
  - PARAESTHESIA [None]
